FAERS Safety Report 5445512-7 (Version None)
Quarter: 2007Q3

REPORT INFORMATION
  Report Type: 
  Country: None (occurrence: None)
  Receive Date: 20070906
  Receipt Date: 20070821
  Transmission Date: 20080115
  Serious: No
  Sender: FDA-Public Use
  Company Number: US-BOEHRINGER INGELHEIM PHARMACEUTICALS, INC.-2007-BP-19632BP

PATIENT
  Sex: Female

DRUGS (3)
  1. MIRAPEX [Suspect]
     Indication: MUSCLE SPASMS
     Route: 048
     Dates: start: 20070820, end: 20070820
  2. SYNTHROID [Concomitant]
     Indication: HYPOTHYROIDISM
  3. DIOVAN [Concomitant]
     Indication: HYPERTENSION

REACTIONS (3)
  - DIZZINESS [None]
  - RETCHING [None]
  - VOMITING [None]
